FAERS Safety Report 9900692 (Version 2)
Quarter: 2014Q1

REPORT INFORMATION
  Report Type: Spontaneous
  Country: DE (occurrence: DE)
  Receive Date: 20140217
  Receipt Date: 20140325
  Transmission Date: 20141002
  Serious: Yes (Other)
  Sender: FDA-Public Use
  Company Number: DE-AMGEN-DEUSP2014009957

PATIENT
  Age: 77 Year
  Sex: Male

DRUGS (1)
  1. PROLIA [Suspect]
     Indication: OSTEOPOROSIS
     Dosage: UNK
     Route: 065
     Dates: start: 201308

REACTIONS (4)
  - Sepsis [Recovering/Resolving]
  - Hip arthroplasty [Unknown]
  - Decreased immune responsiveness [Unknown]
  - Skin infection [Unknown]
